FAERS Safety Report 16005547 (Version 2)
Quarter: 2022Q2

REPORT INFORMATION
  Report Type: Spontaneous
  Country: CZ (occurrence: CZ)
  Receive Date: 20190226
  Receipt Date: 20220504
  Transmission Date: 20220721
  Serious: Yes (Other)
  Sender: FDA-Public Use
  Company Number: CZ-EMA-DD-20181204-SINGH_N3-203033

PATIENT
  Age: 61 Year
  Sex: Female

DRUGS (10)
  1. PREDNISONE [Suspect]
     Active Substance: PREDNISONE
     Indication: Immunosuppressant drug therapy
     Route: 065
     Dates: start: 2013
  2. PREDNISONE [Suspect]
     Active Substance: PREDNISONE
     Indication: Liver transplant
  3. INSULIN LISPRO [Suspect]
     Active Substance: INSULIN LISPRO
     Indication: Type 2 diabetes mellitus
     Dosage: 20 U, TID
  4. TACROLIMUS [Suspect]
     Active Substance: TACROLIMUS
     Indication: Liver transplant
     Dosage: UNK UNK, UNKNOWN FREQ.
     Route: 065
     Dates: start: 2013
  5. TACROLIMUS [Suspect]
     Active Substance: TACROLIMUS
     Indication: Immunosuppressant drug therapy
  6. LEVEMIR [Concomitant]
     Active Substance: INSULIN DETEMIR
     Indication: Type 2 diabetes mellitus
     Dosage: UNK UNK, UNKNOWN FREQ.
     Route: 065
  7. LEVEMIR [Concomitant]
     Active Substance: INSULIN DETEMIR
     Dosage: 20 UNITS
  8. LEVEMIR [Concomitant]
     Active Substance: INSULIN DETEMIR
     Dosage: 16 IU, QD, 16 UNITS IN THE MORNING
  9. HUMULIN R [Concomitant]
     Active Substance: INSULIN HUMAN
     Indication: Type 2 diabetes mellitus
     Dosage: UNK UNK, UNKNOWN FREQ.
     Route: 065
  10. HUMULIN R [Concomitant]
     Active Substance: INSULIN HUMAN
     Dosage: 16-16-16 IU DOSES, UNKNOWN FREQ.

REACTIONS (6)
  - Increased insulin requirement [Recovered/Resolved]
  - Diabetes mellitus inadequate control [Recovering/Resolving]
  - Weight increased [Recovering/Resolving]
  - Treatment noncompliance [Recovering/Resolving]
  - Glycosuria [Recovering/Resolving]
  - Lipodystrophy acquired [Recovering/Resolving]
